FAERS Safety Report 10802275 (Version 2)
Quarter: 2015Q1

REPORT INFORMATION
  Report Type: Spontaneous
  Country: JP (occurrence: JP)
  Receive Date: 20150217
  Receipt Date: 20150225
  Transmission Date: 20150721
  Serious: Yes (Hospitalization)
  Sender: FDA-Public Use
  Company Number: JP-PFIZER INC-2015060228

PATIENT
  Age: 84 Year
  Sex: Female

DRUGS (12)
  1. ARICEPT [Suspect]
     Active Substance: DONEPEZIL HYDROCHLORIDE
     Dosage: 5 MG, 1 IN 1 D
     Route: 048
  2. HALCION [Concomitant]
     Active Substance: TRIAZOLAM
     Dosage: 0.125 MG, 1 IN 1 D
     Route: 042
  3. MAGMITT [Concomitant]
     Active Substance: MAGNESIUM OXIDE
     Dosage: 250 MG, 3 IN 1 D
     Route: 048
  4. MUCOSTA [Concomitant]
     Active Substance: REBAMIPIDE
     Dosage: 2 DF, 2X/DAY
     Route: 048
  5. MYSLEE [Concomitant]
     Active Substance: ZOLPIDEM TARTRATE
     Dosage: 5 MG, 1 IN 1 D
     Route: 048
  6. ADALAT CC [Concomitant]
     Active Substance: NIFEDIPINE
     Dosage: 20 MG, 1 IN 1 D
     Route: 048
  7. ACTONEL [Concomitant]
     Active Substance: RISEDRONATE SODIUM
     Dosage: 17.5 MG, 1 IN 1 D
     Route: 048
  8. HERBAL NOS [Concomitant]
     Active Substance: HERBALS
     Dosage: 7.5 G, 3X/DAY
     Route: 048
  9. ROZEREM [Concomitant]
     Active Substance: RAMELTEON
     Dosage: 8 MG, 1 IN 1 D
     Route: 048
  10. SEROQUEL [Concomitant]
     Active Substance: QUETIAPINE FUMARATE
     Dosage: 4 DF, DAILY
     Route: 048
  11. LANSOPRAZOLE. [Concomitant]
     Active Substance: LANSOPRAZOLE
     Dosage: 15 MG, 1 IN 1 D
     Route: 048
  12. LENDORMIN D [Concomitant]
     Active Substance: BROTIZOLAM
     Dosage: 25 MG, 1 IN 1 D
     Route: 048

REACTIONS (2)
  - Decreased appetite [Unknown]
  - Insomnia [Unknown]
